FAERS Safety Report 5660475-7 (Version None)
Quarter: 2008Q1

REPORT INFORMATION
  Report Type: 
  Country: None (occurrence: None)
  Receive Date: 20080306
  Receipt Date: 20080221
  Transmission Date: 20080703
  Serious: Yes (Disabling)
  Sender: FDA-Public Use
  Company Number: 2008JP000651

PATIENT
  Age: 60 Year
  Sex: Male

DRUGS (2)
  1. PROTOPIC [Suspect]
     Indication: LICHEN PLANUS
     Dosage: 1: 0.1 %,  TOPICAL
     Route: 061
     Dates: start: 20060408, end: 20061208
  2. RINDERON-VG           (GENTAMICIN SULFATE) [Concomitant]

REACTIONS (1)
  - SQUAMOUS CELL CARCINOMA [None]
